FAERS Safety Report 4592551-4 (Version None)
Quarter: 2005Q1

REPORT INFORMATION
  Report Type: 
  Country: None (occurrence: None)
  Receive Date: 20050222
  Receipt Date: 20050215
  Transmission Date: 20050727
  Serious: Yes (Death)
  Sender: FDA-Public Use
  Company Number: 2005AL000657

PATIENT
  Sex: Female

DRUGS (1)
  1. KADIAN [Suspect]

REACTIONS (1)
  - COMPLETED SUICIDE [None]
